FAERS Safety Report 8293808-6 (Version None)
Quarter: 2012Q2

REPORT INFORMATION
  Report Type: 
  Country: None (occurrence: None)
  Receive Date: 20120418
  Receipt Date: 20120405
  Transmission Date: 20120825
  Serious: Yes (Hospitalization, Other)
  Sender: FDA-Public Use
  Company Number: US-BAYER-2011-069148

PATIENT
  Age: 75 Year
  Sex: Male
  Weight: 82 kg

DRUGS (15)
  1. LASIX [Concomitant]
  2. COLACE [Concomitant]
  3. NAPROSYN [Concomitant]
  4. PREDNISONE TAB [Suspect]
  5. MDX-010 [Suspect]
     Indication: MALIGNANT MELANOMA
     Dosage: 10 MG/KG, ON DAY 1 OF A 21 DAY CYCLE
     Dates: start: 20110705
  6. POTASSIUM CHLORIDE [Concomitant]
  7. CORTEF [Concomitant]
  8. ALBUTEROL [Concomitant]
  9. METOPROLOL TARTRATE [Concomitant]
  10. ADVAIR DISKUS 100/50 [Concomitant]
  11. IBUPROFEN [Concomitant]
  12. SARGRAMOSTIM [Suspect]
     Indication: MALIGNANT MELANOMA
     Dosage: 250 ?G/D, ON DAYS 1-14 OF A CYCLE OF 21 DAYS
     Route: 058
     Dates: start: 20110613
  13. FLORINEF [Concomitant]
  14. BENADRYL [Concomitant]
  15. MUCINEX [Concomitant]

REACTIONS (4)
  - HYPONATRAEMIA [None]
  - HYPOTENSION [None]
  - PNEUMONIA [None]
  - DEHYDRATION [None]
